FAERS Safety Report 6534663-1 (Version None)
Quarter: 2010Q1

REPORT INFORMATION
  Report Type: 
  Country: None (occurrence: None)
  Receive Date: 20100112
  Receipt Date: 20100104
  Transmission Date: 20100710
  Serious: Yes (Hospitalization)
  Sender: FDA-Public Use
  Company Number: GXKR2009PL13203

PATIENT
  Age: 63 Year
  Sex: Male

DRUGS (3)
  1. ZOLPIDEM (NGX) [Suspect]
     Indication: SEDATIVE THERAPY
     Dosage: INCREASING DOSES ENDING UP TAKING APPROXIMATELY 100 MG DAILY
     Route: 048
  2. ZOLPIDEM (NGX) [Suspect]
     Indication: ANXIETY
  3. CITALOPRAM HYDROBROMIDE [Concomitant]
     Indication: DEPRESSION

REACTIONS (9)
  - DRUG DEPENDENCE [None]
  - DRUG WITHDRAWAL SYNDROME [None]
  - HYPERHIDROSIS [None]
  - INSOMNIA [None]
  - INTENTIONAL DRUG MISUSE [None]
  - MYALGIA [None]
  - NERVOUSNESS [None]
  - PARAESTHESIA [None]
  - TREMOR [None]
